FAERS Safety Report 6333375-7 (Version None)
Quarter: 2009Q3

REPORT INFORMATION
  Report Type: 
  Country: None (occurrence: None)
  Receive Date: 20090828
  Receipt Date: 20090824
  Transmission Date: 20100115
  Serious: Yes (Other)
  Sender: FDA-Public Use
  Company Number: BR-ROXANE LABORATORIES, INC.-2009-RO-00860RO

PATIENT
  Age: 42 Year
  Sex: Female

DRUGS (10)
  1. AZATHIOPRINE [Suspect]
     Indication: RENAL TRANSPLANT
  2. AZATHIOPRINE [Suspect]
     Dates: start: 20010101, end: 20060620
  3. PREDNISONE TAB [Suspect]
     Indication: RENAL TRANSPLANT
  4. CLARITHROMYCIN [Suspect]
     Indication: HELICOBACTER INFECTION
     Dates: start: 20060613
  5. CYCLOSPORINE [Suspect]
     Indication: RENAL TRANSPLANT
     Dates: end: 20060620
  6. METHYLPREDNISOLONE [Suspect]
     Indication: KIDNEY TRANSPLANT REJECTION
     Dates: start: 19940101
  7. OMEPRAZOLE [Suspect]
     Indication: HELICOBACTER INFECTION
     Dates: start: 20060613
  8. AMOXICILLIN [Suspect]
     Indication: HELICOBACTER INFECTION
     Dates: start: 20060613
  9. SIROLIMUS [Concomitant]
     Indication: RENAL TRANSPLANT
     Dosage: 4 MG
     Dates: start: 20060620
  10. IBERSATAN [Concomitant]

REACTIONS (8)
  - DRUG INEFFECTIVE [None]
  - EPSTEIN-BARR VIRUS TEST POSITIVE [None]
  - GASTRITIS ATROPHIC [None]
  - HELICOBACTER INFECTION [None]
  - KIDNEY TRANSPLANT REJECTION [None]
  - METAPLASIA [None]
  - NON-HODGKIN'S LYMPHOMA [None]
  - VULVOVAGINAL HUMAN PAPILLOMA VIRUS INFECTION [None]
